FAERS Safety Report 19073729 (Version 1)
Quarter: 2021Q1

REPORT INFORMATION
  Report Type: Spontaneous
  Country: US (occurrence: US)
  Receive Date: 20210330
  Receipt Date: 20210330
  Transmission Date: 20210420
  Serious: No
  Sender: FDA-Public Use
  Company Number: US-PFIZER INC-2021298695

PATIENT
  Age: 69 Year
  Sex: Female
  Weight: 61.23 kg

DRUGS (2)
  1. ESTRING [Suspect]
     Active Substance: ESTRADIOL
     Indication: MENOPAUSE
     Dosage: UNK UNK, EVERY 3 MONTHS
  2. ESTRING [Suspect]
     Active Substance: ESTRADIOL
     Indication: OESTROGEN DEFICIENCY

REACTIONS (1)
  - Therapeutic response unexpected [Unknown]
